FAERS Safety Report 4520186-8 (Version None)
Quarter: 2004Q4

REPORT INFORMATION
  Report Type: 
  Country: None (occurrence: None)
  Receive Date: 20041028
  Receipt Date: 20040607
  Transmission Date: 20050328
  Serious: Yes (Hospitalization)
  Sender: FDA-Public Use
  Company Number: 04P-163-0263104-00

PATIENT
  Age: 77 Year
  Sex: Female
  Weight: 113.3993 kg

DRUGS (12)
  1. TARKA [Suspect]
     Indication: HYPERTENSION
     Dosage: 1 TABLET, 2 IN 1 D, ORAL
     Route: 048
     Dates: start: 20040301
  2. CLOPIDOGREL BISULFATE [Concomitant]
  3. FOLIC ACID [Concomitant]
  4. FUROSEMIDE [Concomitant]
  5. ZOCOR [Concomitant]
  6. CELECOXIB [Concomitant]
  7. CINGULAR [Concomitant]
  8. POTASSIUM CHLORIDE [Concomitant]
  9. GLUCOSAMINE W/CHONDROITIN SULFATES [Concomitant]
  10. ACTOS [Concomitant]
  11. FLUTICASONE PROPIONATE [Concomitant]
  12. SEREVENT [Concomitant]

REACTIONS (3)
  - BLOOD GLUCOSE INCREASED [None]
  - HAIR COLOUR CHANGES [None]
  - MYOCARDIAL INFARCTION [None]
